FAERS Safety Report 8859853 (Version 1)
Quarter: 2012Q4

REPORT INFORMATION
  Report Type: Report from Study
  Country: US (occurrence: US)
  Receive Date: 20121025
  Receipt Date: 20121025
  Transmission Date: 20130627
  Serious: No
  Sender: FDA-Public Use
  Company Number: US-ABBOTT-11P-163-0871380-00

PATIENT
  Sex: Female
  Weight: 71.28 kg

DRUGS (4)
  1. LUPRON DEPOT 3.75 MG [Suspect]
     Indication: ENDOMETRIOSIS
     Dosage: 1 in 1 Day, 2 injections rec^d from MD office
     Route: 050
     Dates: end: 201109
  2. GEMFIBROZIL [Concomitant]
     Indication: BLOOD TRIGLYCERIDES INCREASED
     Dates: start: 2003
  3. GEMFIBROZIL [Concomitant]
     Indication: HEPATIC STEATOSIS
  4. NORTRIPTYLINE [Concomitant]
     Indication: PANIC ATTACK

REACTIONS (3)
  - Hypoaesthesia [Recovered/Resolved]
  - Abdominal pain upper [Recovered/Resolved]
  - Dry mouth [Not Recovered/Not Resolved]
